FAERS Safety Report 7633868-6 (Version None)
Quarter: 2011Q3

REPORT INFORMATION
  Report Type: 
  Country: None (occurrence: None)
  Receive Date: 20110725
  Receipt Date: 20110721
  Transmission Date: 20111222
  Serious: Yes (Life-Threatening)
  Sender: FDA-Public Use
  Company Number: HR-ASTRAZENECA-2011SE43594

PATIENT
  Age: 10085 Day
  Sex: Female
  Weight: 50 kg

DRUGS (6)
  1. SEROQUEL XR [Suspect]
     Dosage: 53 TABLETS OF 400 MG
     Route: 048
  2. NOZINAN [Concomitant]
     Indication: SCHIZOPHRENIA
     Route: 048
     Dates: start: 20110401
  3. MODITEN DEPO [Concomitant]
     Route: 042
     Dates: start: 20110401
  4. CLONAZEPAM [Concomitant]
     Route: 048
     Dates: start: 20110401
  5. SEROQUEL XR [Suspect]
     Indication: SCHIZOPHRENIA
     Route: 048
     Dates: start: 20110101
  6. ZOLPIDEM TARTRATE [Concomitant]
     Route: 048
     Dates: start: 20110401

REACTIONS (3)
  - EPISTAXIS [None]
  - SUICIDE ATTEMPT [None]
  - COMA [None]
